FAERS Safety Report 24738580 (Version 1)
Quarter: 2024Q4

REPORT INFORMATION
  Report Type: Spontaneous
  Country: US (occurrence: US)
  Receive Date: 20241216
  Receipt Date: 20241216
  Transmission Date: 20250115
  Serious: No
  Sender: ALVOGEN
  Company Number: US-ALVOGEN-2023092656

PATIENT
  Sex: Female

DRUGS (2)
  1. FENTANYL [Suspect]
     Active Substance: FENTANYL
     Indication: Product used for unknown indication
     Dosage: FIRST BOX?OTHER IDENTIFICATION DETAILS: 110851038568?STRENGTH: 50 MCG/HR?EXP DATE AUG-2026
  2. FENTANYL [Suspect]
     Active Substance: FENTANYL
     Indication: Product used for unknown indication
     Dosage: SECOND BOX?STRENGTH: 50 MCG/HR

REACTIONS (1)
  - Drug ineffective [Unknown]
